FAERS Safety Report 19179781 (Version 1)
Quarter: 2021Q2

REPORT INFORMATION
  Report Type: Report from Study
  Country: US (occurrence: US)
  Receive Date: 20210426
  Receipt Date: 20210426
  Transmission Date: 20210717
  Serious: No
  Sender: FDA-Public Use
  Company Number: US-GLAXOSMITHKLINE-US2021AMR089632

PATIENT
  Age: 72 Year
  Sex: Female

DRUGS (2)
  1. BELANTAMAB MAFODOTIN. [Suspect]
     Active Substance: BELANTAMAB MAFODOTIN
     Indication: PRODUCT USED FOR UNKNOWN INDICATION
     Dosage: 2.5 MG/KG
     Dates: start: 20200702
  2. BELANTAMAB MAFODOTIN. [Suspect]
     Active Substance: BELANTAMAB MAFODOTIN
     Dosage: 1.92 MG/KG
     Dates: start: 20200911

REACTIONS (3)
  - Visual acuity reduced [Recovered/Resolved]
  - Night blindness [Recovered/Resolved]
  - Keratopathy [Unknown]

NARRATIVE: CASE EVENT DATE: 202008
